FAERS Safety Report 5512944-8 (Version None)
Quarter: 2007Q4

REPORT INFORMATION
  Report Type: 
  Country: None (occurrence: None)
  Receive Date: 20071108
  Receipt Date: 20071108
  Transmission Date: 20080405
  Serious: No
  Sender: FDA-Public Use
  Company Number: None

PATIENT
  Age: 86 Year
  Sex: Female

DRUGS (4)
  1. MYLERAN [Suspect]
     Indication: POLYCYTHAEMIA VERA
  2. LASIX [Concomitant]
  3. THYROID TAB [Concomitant]
  4. HYDROXYUREA [Concomitant]

REACTIONS (1)
  - PULMONARY FIBROSIS [None]
